FAERS Safety Report 7339922-0 (Version None)
Quarter: 2011Q1

REPORT INFORMATION
  Report Type: 
  Country: None (occurrence: None)
  Receive Date: 20110228
  Receipt Date: 20110211
  Transmission Date: 20110831
  Serious: Yes (Hospitalization)
  Sender: FDA-Public Use
  Company Number: 027402

PATIENT
  Sex: Male
  Weight: 42 kg

DRUGS (7)
  1. OMEPRAZOLE [Concomitant]
  2. VIMPAT [Suspect]
     Indication: EPILEPSY
     Dosage: (200 MG QD, OVER 30 MINUTES INTRAVENOUS (NOT SPECIFIED)) (200 MG BID ORAL) (50 MG BID ORAL)
     Route: 048
     Dates: start: 20110211
  3. VIMPAT [Suspect]
     Indication: EPILEPSY
     Dosage: (200 MG QD, OVER 30 MINUTES INTRAVENOUS (NOT SPECIFIED)) (200 MG BID ORAL) (50 MG BID ORAL)
     Route: 048
     Dates: start: 20110205
  4. VIMPAT [Suspect]
     Indication: EPILEPSY
     Dosage: (200 MG QD, OVER 30 MINUTES INTRAVENOUS (NOT SPECIFIED)) (200 MG BID ORAL) (50 MG BID ORAL)
     Route: 048
     Dates: start: 20110204, end: 20110204
  5. TOPAMAX [Concomitant]
  6. KEPPRA [Concomitant]
  7. CLEXANE [Concomitant]

REACTIONS (4)
  - COMPLEX PARTIAL SEIZURES [None]
  - EATING DISORDER [None]
  - DEPRESSED LEVEL OF CONSCIOUSNESS [None]
  - GENERAL PHYSICAL HEALTH DETERIORATION [None]
